FAERS Safety Report 12398041 (Version 1)
Quarter: 2016Q2

REPORT INFORMATION
  Report Type: Spontaneous
  Country: US (occurrence: None)
  Receive Date: 20160523
  Receipt Date: 20160523
  Transmission Date: 20160815
  Serious: Yes (Hospitalization)
  Sender: FDA-Public Use
  Company Number: None

PATIENT
  Age: 62 Year
  Sex: Male
  Weight: 112.04 kg

DRUGS (19)
  1. INDAPAMIDE. [Concomitant]
     Active Substance: INDAPAMIDE
  2. INVOKANA [Concomitant]
     Active Substance: CANAGLIFLOZIN
  3. VICTOZA [Concomitant]
     Active Substance: LIRAGLUTIDE
  4. ONE TOUCH DELICA LANCETS [Concomitant]
  5. ACTOS [Concomitant]
     Active Substance: PIOGLITAZONE HYDROCHLORIDE
  6. NOVOFINE PEN NEEDLES [Concomitant]
  7. BD ULTRA-FINE SHORT PEN NEEDLE [Concomitant]
  8. VIAGRA [Concomitant]
     Active Substance: SILDENAFIL CITRATE
  9. CHANTIX [Concomitant]
     Active Substance: VARENICLINE TARTRATE
  10. PAXIL [Concomitant]
     Active Substance: PAROXETINE HYDROCHLORIDE
  11. ONE TOUCH VERIO TEST STRIPS [Concomitant]
  12. VERAPAMIL HCL [Concomitant]
     Active Substance: VERAPAMIL HYDROCHLORIDE
  13. INVOKANA [Suspect]
     Active Substance: CANAGLIFLOZIN
     Indication: DIABETES MELLITUS
     Route: 048
     Dates: start: 20140618, end: 20160519
  14. REAGENT STRIPS [Concomitant]
  15. FENOFIBRATE. [Concomitant]
     Active Substance: FENOFIBRATE
  16. LIPOFEN [Concomitant]
     Active Substance: FENOFIBRATE
  17. LIPITOR [Concomitant]
     Active Substance: ATORVASTATIN CALCIUM
  18. LISINOPRIL. [Concomitant]
     Active Substance: LISINOPRIL
  19. BD NANO PEN NEEDLE [Concomitant]

REACTIONS (1)
  - Toe amputation [None]

NARRATIVE: CASE EVENT DATE: 20160514
